FAERS Safety Report 4868130-8 (Version None)
Quarter: 2005Q4

REPORT INFORMATION
  Report Type: 
  Country: None (occurrence: None)
  Receive Date: 20051229
  Receipt Date: 20050818
  Transmission Date: 20060501
  Serious: Yes (Other)
  Sender: FDA-Public Use
  Company Number: PHBS2005JP12261

PATIENT
  Age: 7 Year
  Sex: Female

DRUGS (5)
  1. TEGRETOL [Suspect]
     Indication: EPILEPSY
     Dosage: 100 MG, QD
     Route: 048
     Dates: start: 20030901, end: 20040601
  2. TEGRETOL [Suspect]
     Dosage: 150 MG, QD
     Route: 048
     Dates: start: 20040601
  3. TEGRETOL [Suspect]
     Dosage: 180 MG, QD
     Route: 048
  4. TEGRETOL [Suspect]
     Dosage: 250 MG, QD
     Route: 048
  5. TEGRETOL [Suspect]
     Dosage: 150 MG, QD
     Route: 048
     Dates: start: 20050801, end: 20050101

REACTIONS (2)
  - DRUG INEFFECTIVE [None]
  - VENTRICULAR EXTRASYSTOLES [None]
